FAERS Safety Report 10811077 (Version 1)
Quarter: 2015Q1

REPORT INFORMATION
  Report Type: Spontaneous
  Country: US (occurrence: None)
  Receive Date: 20150212
  Receipt Date: 20150212
  Transmission Date: 20150721
  Serious: No
  Sender: FDA-Public Use
  Company Number: None

PATIENT
  Age: 78 Year
  Sex: Male
  Weight: 93.44 kg

DRUGS (9)
  1. CEFUROXIME. [Suspect]
     Active Substance: CEFUROXIME
     Indication: PROSTATITIS
     Dosage: 500MG, 28, ONE EVERY TWELVE HOURS, BY MOUTH
     Route: 048
     Dates: start: 20150122, end: 20150204
  2. FLOMAX [Concomitant]
     Active Substance: TAMSULOSIN HYDROCHLORIDE
  3. LIPITOR [Concomitant]
     Active Substance: ATORVASTATIN CALCIUM
  4. BENAZAPRIL [Concomitant]
  5. ATENOLOL. [Concomitant]
     Active Substance: ATENOLOL
  6. FINASTERIDE. [Concomitant]
     Active Substance: FINASTERIDE
  7. NORVASC [Concomitant]
     Active Substance: AMLODIPINE BESYLATE
  8. COZAAR [Concomitant]
     Active Substance: LOSARTAN POTASSIUM
  9. PLAVIX [Concomitant]
     Active Substance: CLOPIDOGREL BISULFATE

REACTIONS (3)
  - Unevaluable event [None]
  - Insomnia [None]
  - Erectile dysfunction [None]

NARRATIVE: CASE EVENT DATE: 20150127
